FAERS Safety Report 23088919 (Version 1)
Quarter: 2023Q4

REPORT INFORMATION
  Report Type: Spontaneous
  Country: US (occurrence: US)
  Receive Date: 20231020
  Receipt Date: 20231020
  Transmission Date: 20240110
  Serious: Yes (Hospitalization)
  Sender: FDA-Public Use
  Company Number: US-MYLANLABS-2023M1109345

PATIENT
  Age: 63 Year
  Sex: Male

DRUGS (1)
  1. DEXAMETHASONE [Suspect]
     Active Substance: DEXAMETHASONE
     Indication: COVID-19
     Dosage: 80 MILLIGRAM, QD, RECEIVED HIGH DOSE FOLLOWED BY A PROLONG TAPER
     Route: 065

REACTIONS (4)
  - Cryptococcosis [Recovering/Resolving]
  - Cerebrovascular accident [Recovering/Resolving]
  - Cerebral infarction [Recovering/Resolving]
  - Off label use [Unknown]
